FAERS Safety Report 14675229 (Version 1)
Quarter: 2018Q1

REPORT INFORMATION
  Report Type: Spontaneous
  Country: US (occurrence: US)
  Receive Date: 20180323
  Receipt Date: 20180323
  Transmission Date: 20180509
  Serious: Yes (Other)
  Sender: FDA-Public Use
  Company Number: US-LPDUSPRD-20180365

PATIENT
  Age: 64 Year
  Sex: Female

DRUGS (1)
  1. LEVETIRACETAM INJECTION (0517-3605-01) [Suspect]
     Active Substance: LEVETIRACETAM
     Dosage: UNKNOWN
     Route: 065

REACTIONS (2)
  - Product use in unapproved indication [Unknown]
  - Myoclonus [Unknown]
